FAERS Safety Report 22781239 (Version 3)
Quarter: 2023Q4

REPORT INFORMATION
  Report Type: Report from Study
  Country: US (occurrence: US)
  Receive Date: 20230803
  Receipt Date: 20231207
  Transmission Date: 20240110
  Serious: No
  Sender: FDA-Public Use
  Company Number: US-002147023-NVSC2023US169924

PATIENT
  Age: 73 Year
  Sex: Female

DRUGS (4)
  1. ENTRESTO [Suspect]
     Active Substance: SACUBITRIL\VALSARTAN
     Indication: Cardiac failure chronic
     Dosage: UNK UNK, BID
     Route: 048
     Dates: start: 202305
  2. CORTISONE [Suspect]
     Active Substance: CORTISONE
     Indication: Sacroiliac joint dysfunction
     Dosage: UNK (SHOT)
     Route: 065
  3. CORTISONE [Suspect]
     Active Substance: CORTISONE
     Indication: Gait disturbance
     Dosage: UNK (SHOT)
     Route: 065
     Dates: start: 20230915
  4. PREDNISONE [Suspect]
     Active Substance: PREDNISONE
     Indication: Gait disturbance
     Dosage: UNK
     Route: 065

REACTIONS (3)
  - Stress [Unknown]
  - COVID-19 [Not Recovered/Not Resolved]
  - Adverse drug reaction [Unknown]

NARRATIVE: CASE EVENT DATE: 20230801
